FAERS Safety Report 14432025 (Version 1)
Quarter: 2018Q1

REPORT INFORMATION
  Report Type: Spontaneous
  Country: US (occurrence: US)
  Receive Date: 20180124
  Receipt Date: 20180124
  Transmission Date: 20180509
  Serious: No
  Sender: FDA-Public Use
  Company Number: US-JNJFOC-20171229312

PATIENT
  Age: 84 Year
  Sex: Male
  Weight: 72.58 kg

DRUGS (4)
  1. LEVAQUIN [Suspect]
     Active Substance: LEVOFLOXACIN
     Indication: PNEUMONIA
     Route: 042
     Dates: start: 20171218, end: 20171218
  2. LEVAQUIN [Suspect]
     Active Substance: LEVOFLOXACIN
     Indication: PNEUMONIA
     Route: 042
     Dates: start: 20171218, end: 20171221
  3. LEVAQUIN [Suspect]
     Active Substance: LEVOFLOXACIN
     Indication: PNEUMONIA
     Route: 048
     Dates: start: 20171218, end: 20171218
  4. COUMADIN [Concomitant]
     Active Substance: WARFARIN SODIUM
     Indication: ANTICOAGULANT THERAPY
     Route: 065

REACTIONS (1)
  - Hallucination, visual [Not Recovered/Not Resolved]

NARRATIVE: CASE EVENT DATE: 201712
